FAERS Safety Report 9995158 (Version 1)
Quarter: 2014Q1

REPORT INFORMATION
  Report Type: Spontaneous
  Country: US (occurrence: None)
  Receive Date: 20140214
  Receipt Date: 20140214
  Transmission Date: 20141002
  Serious: Yes (Other)
  Sender: FDA-Public Use
  Company Number: US-014101

PATIENT
  Age: 78 Year
  Sex: Female
  Weight: 68.04 kg

DRUGS (5)
  1. PICO-SALAX (NOT SPECIFIED) [Suspect]
     Indication: BOWEL PREPARATION
     Dosage: FIRST DOSE: 17-DEC-2013: 6:00 PM; SECOND DOSE: 18-DEC-2013: 5:00 AM ORAL
     Dates: start: 20131217, end: 20131218
  2. PROPANOLOL /00030001/ [Concomitant]
  3. ACCUPRIL [Concomitant]
  4. NATURAL VITAMIN D [Concomitant]
  5. FISH OIL [Concomitant]

REACTIONS (1)
  - Diarrhoea [None]
